FAERS Safety Report 4508976-9 (Version None)
Quarter: 2004Q4

REPORT INFORMATION
  Report Type: 
  Country: None (occurrence: None)
  Receive Date: 20041122
  Receipt Date: 20041122
  Transmission Date: 20050328
  Serious: Yes (Hospitalization)
  Sender: FDA-Public Use
  Company Number: None

PATIENT
  Age: 7 Year
  Sex: Male

DRUGS (1)
  1. METADATE CD [Suspect]
     Indication: ATTENTION DEFICIT/HYPERACTIVITY DISORDER
     Dosage: 40 MG ONCE A DAY ORAL
     Route: 048
     Dates: start: 20041114, end: 20041114

REACTIONS (3)
  - AGITATION [None]
  - CONVULSION [None]
  - MENTAL STATUS CHANGES [None]
